APPROVED DRUG PRODUCT: KRINTAFEL
Active Ingredient: TAFENOQUINE SUCCINATE
Strength: EQ 150MG BASE
Dosage Form/Route: TABLET;ORAL
Application: N210795 | Product #001
Applicant: GLAXOSMITHKLINE INTELLECTUAL PROPERTY DEVELOPMENT LTD ENGLAND
Approved: Jul 20, 2018 | RLD: Yes | RS: Yes | Type: RX